FAERS Safety Report 4496634-9 (Version None)
Quarter: 2004Q4

REPORT INFORMATION
  Report Type: 
  Country: None (occurrence: None)
  Receive Date: 20041108
  Receipt Date: 20041029
  Transmission Date: 20050328
  Serious: Yes (Life-Threatening)
  Sender: FDA-Public Use
  Company Number: 2004SE06098

PATIENT
  Age: 65 Year
  Sex: Male
  Weight: 105 kg

DRUGS (7)
  1. ROSUVASTATIN [Suspect]
     Indication: HYPERCHOLESTEROLAEMIA
     Dosage: 1 DF  DAILY
     Dates: start: 20040701
  2. CARDURA [Concomitant]
  3. ATACAND [Concomitant]
  4. NORVASC [Concomitant]
  5. LASIX [Concomitant]
  6. NOVORAPID [Concomitant]
  7. LANTUS [Concomitant]

REACTIONS (1)
  - HYPERKALAEMIA [None]
